FAERS Safety Report 10691312 (Version 1)
Quarter: 2015Q1

REPORT INFORMATION
  Report Type: Spontaneous
  Country: US (occurrence: US)
  Receive Date: 20150105
  Receipt Date: 20150105
  Transmission Date: 20150720
  Serious: No
  Sender: FDA-Public Use
  Company Number: US-GLAXOSMITHKLINE-US2014GSK044490

PATIENT
  Age: 76 Year
  Sex: Female

DRUGS (2)
  1. UNKNOWN [Concomitant]
     Active Substance: UNSPECIFIED INGREDIENT
  2. COREG CR [Suspect]
     Active Substance: CARVEDILOL PHOSPHATE
     Indication: HYPERTENSION
     Dosage: 10 MG, QD
     Route: 048
     Dates: start: 2013

REACTIONS (4)
  - Hypersomnia [Not Recovered/Not Resolved]
  - Dry mouth [Not Recovered/Not Resolved]
  - Somnolence [Unknown]
  - Dry eye [Recovering/Resolving]

NARRATIVE: CASE EVENT DATE: 2014
